FAERS Safety Report 7262444-2 (Version None)
Quarter: 2011Q1

REPORT INFORMATION
  Report Type: 
  Country: None (occurrence: None)
  Receive Date: 20110130
  Receipt Date: 20101118
  Transmission Date: 20110831
  Serious: No
  Sender: FDA-Public Use
  Company Number: US-ABBOTT-10P-163-0686418-00

PATIENT
  Age: 33 Year
  Sex: Female

DRUGS (9)
  1. HUMIRA [Suspect]
     Indication: CROHN'S DISEASE
     Dates: start: 20100909
  2. METHADONE HCL [Concomitant]
     Indication: PAIN
  3. NEXIUM [Concomitant]
     Indication: GASTROOESOPHAGEAL REFLUX DISEASE
  4. PHENERGAN [Concomitant]
     Indication: NAUSEA
  5. NAPROSYN [Concomitant]
     Indication: ARTHRALGIA
  6. BACLOFEN [Concomitant]
     Indication: MUSCLE RELAXANT THERAPY
  7. PROZAC [Concomitant]
     Indication: DEPRESSION
  8. HUMIRA [Suspect]
  9. AMBIEN [Concomitant]
     Indication: INSOMNIA

REACTIONS (6)
  - AMENORRHOEA [None]
  - POLYMENORRHOEA [None]
  - PAIN [None]
  - ABDOMINAL PAIN [None]
  - DRUG INEFFECTIVE [None]
  - ABDOMINAL DISTENSION [None]
